FAERS Safety Report 4951698-0 (Version None)
Quarter: 2006Q1

REPORT INFORMATION
  Report Type: 
  Country: None (occurrence: None)
  Receive Date: 20060322
  Receipt Date: 20060322
  Transmission Date: 20060701
  Serious: Yes (Other)
  Sender: FDA-Public Use
  Company Number: None

PATIENT

DRUGS (2)
  1. PHENYLEPHRINE 1% -10MG/ML BAXTER FOR GENSIA SICOR [Suspect]
     Indication: HYPOTENSION
     Dosage: 10 MG ONCE IV BOLUS
     Route: 042
     Dates: start: 20060313, end: 20060321
  2. PHENYLEPHRINE 1% -10MG/ML BAXTER FOR GENSIA SICOR [Suspect]

REACTIONS (2)
  - NO THERAPEUTIC RESPONSE [None]
  - PROCEDURAL COMPLICATION [None]
